FAERS Safety Report 19723031 (Version 1)
Quarter: 2021Q3

REPORT INFORMATION
  Report Type: Spontaneous
  Country: US (occurrence: US)
  Receive Date: 20210820
  Receipt Date: 20210820
  Transmission Date: 20211014
  Serious: No
  Sender: FDA-Public Use
  Company Number: US-BAUSCH-BL-2021-027904

PATIENT
  Age: 35 Year
  Sex: Male
  Weight: 99.88 kg

DRUGS (6)
  1. XIFAXAN [Suspect]
     Active Substance: RIFAXIMIN
     Dosage: 2ND ROUND OF TREATMENT STARTED APPROXIMATELY A WEEK AGO (FROM DATE OF REPORT) FOR 14 DAYS
     Route: 048
     Dates: start: 2021
  2. PROPANOLOL [Concomitant]
     Active Substance: PROPRANOLOL HYDROCHLORIDE
     Indication: PRODUCT USED FOR UNKNOWN INDICATION
  3. XIFAXAN [Suspect]
     Active Substance: RIFAXIMIN
     Indication: IRRITABLE BOWEL SYNDROME
     Dosage: 1ST ROUND OF TREATMENT STARTED ABOUT A MONTH AND A HALF AGO (FROM DATE OF REPORT)
     Route: 048
     Dates: start: 202106, end: 2021
  4. LISINOPRIL. [Concomitant]
     Active Substance: LISINOPRIL
     Indication: PRODUCT USED FOR UNKNOWN INDICATION
  5. EFFEXOR [Concomitant]
     Active Substance: VENLAFAXINE HYDROCHLORIDE
     Indication: PRODUCT USED FOR UNKNOWN INDICATION
  6. AMITRIPTYLINE [Concomitant]
     Active Substance: AMITRIPTYLINE
     Indication: PRODUCT USED FOR UNKNOWN INDICATION

REACTIONS (4)
  - Fall [Unknown]
  - Wound [Unknown]
  - Contusion [Unknown]
  - Muscular weakness [Unknown]

NARRATIVE: CASE EVENT DATE: 2021
